FAERS Safety Report 5032202-8 (Version None)
Quarter: 2006Q2

REPORT INFORMATION
  Report Type: 
  Country: None (occurrence: None)
  Receive Date: 20060619
  Receipt Date: 20060607
  Transmission Date: 20061013
  Serious: Yes (Hospitalization, Other)
  Sender: FDA-Public Use
  Company Number: 2006058427

PATIENT
  Age: 46 Year
  Sex: Male
  Weight: 98.4306 kg

DRUGS (4)
  1. BEXTRA [Suspect]
     Indication: PAIN
     Dosage: 20 MG ( 20 MG, 1 IN 1 AS NECESSARY), ORAL
     Route: 048
  2. PREVACID [Concomitant]
  3. LIPITOR [Concomitant]
  4. ASPIRIN [Concomitant]

REACTIONS (1)
  - MICROVASCULAR ANGINA [None]
